FAERS Safety Report 16781932 (Version 1)
Quarter: 2019Q3

REPORT INFORMATION
  Report Type: Report from Study
  Country: IT (occurrence: IT)
  Receive Date: 20190906
  Receipt Date: 20190906
  Transmission Date: 20191005
  Serious: Yes (Death, Hospitalization, Other)
  Sender: FDA-Public Use
  Company Number: PHHY2019IT205001

PATIENT
  Age: 51 Year
  Sex: Female

DRUGS (4)
  1. RITUXIMAB. [Suspect]
     Active Substance: RITUXIMAB
     Indication: PRODUCT USED FOR UNKNOWN INDICATION
     Dosage: 375 MG, QD
     Route: 065
     Dates: start: 20190717
  2. REVOLADE [Suspect]
     Active Substance: ELTROMBOPAG
     Indication: IMMUNE THROMBOCYTOPENIC PURPURA
     Dosage: UNK
     Route: 065
     Dates: start: 2012, end: 20190609
  3. DANAZOL. [Suspect]
     Active Substance: DANAZOL
     Indication: THROMBOCYTOPENIA
     Dosage: 2 DF, QD
     Route: 048
     Dates: start: 20190710, end: 20190719
  4. ROMIPLOSTIM [Suspect]
     Active Substance: ROMIPLOSTIM
     Indication: PRODUCT USED FOR UNKNOWN INDICATION
     Dosage: UNK
     Route: 065
     Dates: start: 20190610, end: 20190625

REACTIONS (12)
  - Metrorrhagia [Unknown]
  - Drug ineffective [Unknown]
  - Myelofibrosis [Unknown]
  - Epistaxis [Unknown]
  - Haemorrhage intracranial [Fatal]
  - Thrombocytopenia [Fatal]
  - Nervous system disorder [Fatal]
  - Mucosal haemorrhage [Unknown]
  - Headache [Unknown]
  - Hepatomegaly [Unknown]
  - Splenomegaly [Unknown]
  - Haematoma [Unknown]

NARRATIVE: CASE EVENT DATE: 20190719
